FAERS Safety Report 7231457-9 (Version None)
Quarter: 2011Q1

REPORT INFORMATION
  Report Type: 
  Country: None (occurrence: None)
  Receive Date: 20110118
  Receipt Date: 20110113
  Transmission Date: 20110831
  Serious: Yes (Hospitalization, Other)
  Sender: FDA-Public Use
  Company Number: CA-ABBOTT-11P-028-0697045-00

PATIENT
  Sex: Female
  Weight: 62.198 kg

DRUGS (6)
  1. FOLIC ACID [Concomitant]
     Indication: VITAMIN SUPPLEMENTATION
     Route: 048
     Dates: start: 19970101
  2. VITAMIN D [Concomitant]
     Indication: ROUTINE HEALTH MAINTENANCE
     Route: 048
     Dates: start: 20070101
  3. METHOTREXATE [Concomitant]
     Indication: ARTHRITIS
     Route: 048
     Dates: start: 19970101
  4. HUMIRA [Suspect]
     Indication: PSORIATIC ARTHROPATHY
     Route: 058
     Dates: start: 20100501, end: 20100901
  5. PREVACID [Concomitant]
     Indication: GASTROOESOPHAGEAL REFLUX DISEASE
     Route: 048
     Dates: start: 19940101
  6. CRESTOR [Concomitant]
     Indication: BLOOD CHOLESTEROL
     Route: 048
     Dates: start: 20080101

REACTIONS (10)
  - DEHYDRATION [None]
  - INFECTION [None]
  - SEPSIS [None]
  - BLOOD POTASSIUM DECREASED [None]
  - KIDNEY INFECTION [None]
  - NAUSEA [None]
  - VERTIGO [None]
  - BLOOD TEST ABNORMAL [None]
  - ASTHENIA [None]
  - CHROMATURIA [None]
